FAERS Safety Report 10207341 (Version 2)
Quarter: 2014Q2

REPORT INFORMATION
  Report Type: Spontaneous
  Country: US (occurrence: US)
  Receive Date: 20140530
  Receipt Date: 20140606
  Transmission Date: 20141212
  Serious: Yes (Hospitalization, Other)
  Sender: FDA-Public Use
  Company Number: US-BAXTER-2014BAX027133

PATIENT
  Sex: Male

DRUGS (2)
  1. DIANEAL LOW CALCIUM (ULTRABAG) [Suspect]
     Indication: RENAL FAILURE CHRONIC
     Route: 033
  2. DIANEAL LOW CALCIUM (ULTRABAG) [Suspect]
     Indication: RENAL FAILURE CHRONIC
     Route: 033

REACTIONS (4)
  - Unresponsive to stimuli [Not Recovered/Not Resolved]
  - Confusional state [Not Recovered/Not Resolved]
  - Dementia [Not Recovered/Not Resolved]
  - Restlessness [Not Recovered/Not Resolved]
